FAERS Safety Report 5534153-9 (Version None)
Quarter: 2007Q4

REPORT INFORMATION
  Report Type: 
  Country: None (occurrence: None)
  Receive Date: 20071129
  Receipt Date: 20071129
  Transmission Date: 20080405
  Serious: Yes (Hospitalization)
  Sender: FDA-Public Use
  Company Number: None

PATIENT
  Sex: Male
  Weight: 69.6 kg

DRUGS (3)
  1. TEMOZOLOMIDE [Suspect]
     Dosage: 1400 MG
  2. KEPPRA [Concomitant]
  3. RISPERDAL [Concomitant]

REACTIONS (6)
  - BRAIN OEDEMA [None]
  - CONFUSIONAL STATE [None]
  - CONSTIPATION [None]
  - GENERAL PHYSICAL HEALTH DETERIORATION [None]
  - INFECTION [None]
  - INTESTINAL OBSTRUCTION [None]
